FAERS Safety Report 8614755-3 (Version None)
Quarter: 2012Q3

REPORT INFORMATION
  Report Type: 
  Country: None (occurrence: None)
  Receive Date: 20120823
  Receipt Date: 20120816
  Transmission Date: 20120928
  Serious: Yes (Other)
  Sender: FDA-Public Use
  Company Number: US-PFIZER INC-2012203447

PATIENT
  Age: 36 Year
  Sex: Female

DRUGS (1)
  1. EPIPEN [Suspect]
     Dosage: UNK

REACTIONS (4)
  - ACCIDENTAL EXPOSURE [None]
  - HYPOAESTHESIA [None]
  - CONTUSION [None]
  - PAIN [None]
